FAERS Safety Report 6810770-0 (Version None)
Quarter: 2010Q2

REPORT INFORMATION
  Report Type: 
  Country: None (occurrence: None)
  Receive Date: 20100630
  Receipt Date: 20100617
  Transmission Date: 20101027
  Serious: Yes (Other)
  Sender: FDA-Public Use
  Company Number: PHHY2010RU23844

PATIENT
  Age: 24 Year
  Sex: Male

DRUGS (8)
  1. SANDIMMUNE [Suspect]
  2. SANDIMMUNE [Suspect]
  3. MYFORTIC [Concomitant]
  4. METHYLPREDNISOLONE ACETATE [Concomitant]
  5. ENALAPRIL MALEATE [Concomitant]
  6. METOPROLOL TARTRATE [Concomitant]
  7. RANITIDINE [Concomitant]
  8. ALPHA D3 [Concomitant]

REACTIONS (3)
  - BLOOD CREATININE INCREASED [None]
  - IMMUNOSUPPRESSANT DRUG LEVEL DECREASED [None]
  - PROTEINURIA [None]
